FAERS Safety Report 14319243 (Version 3)
Quarter: 2018Q1

REPORT INFORMATION
  Report Type: Report from Study
  Country: TW (occurrence: TW)
  Receive Date: 20171222
  Receipt Date: 20180121
  Transmission Date: 20180509
  Serious: Yes (Other)
  Sender: FDA-Public Use
  Company Number: PHHY2017TW192373

PATIENT
  Age: 78 Year
  Sex: Male

DRUGS (6)
  1. EXELON [Concomitant]
     Active Substance: RIVASTIGMINE TARTRATE
     Indication: DEMENTIA ALZHEIMER^S TYPE
     Dosage: 4.6 MG, UNK, PATCH 5 (CM2)
     Route: 062
     Dates: start: 20160506, end: 20160929
  2. MAGNESIUM OXIDE. [Concomitant]
     Active Substance: MAGNESIUM OXIDE
     Indication: FUNCTIONAL GASTROINTESTINAL DISORDER
     Dosage: 250 MG, UNK
     Route: 048
     Dates: start: 20151215, end: 20170804
  3. FLUZINE [Concomitant]
     Indication: CONSTIPATION
     Dosage: 5 MG, UNK
     Route: 048
     Dates: start: 20160527
  4. EXELON PATCH [Suspect]
     Active Substance: RIVASTIGMINE
     Indication: DEMENTIA ALZHEIMER^S TYPE
     Dosage: 9.5 MG, QD, PATCH 10 (CM2)
     Route: 062
     Dates: start: 20160930
  5. YOU JET [Concomitant]
     Indication: PERSISTENT DEPRESSIVE DISORDER
     Dosage: 50 MG, UNK
     Route: 048
     Dates: start: 20160902, end: 20170215
  6. MAGNESIUM OXIDE. [Concomitant]
     Active Substance: MAGNESIUM OXIDE
     Indication: GASTRIC ULCER

REACTIONS (2)
  - Functional gastrointestinal disorder [Recovered/Resolved]
  - Gastric ulcer [Recovered/Resolved]

NARRATIVE: CASE EVENT DATE: 20170324
